FAERS Safety Report 5750658-X (Version None)
Quarter: 2008Q2

REPORT INFORMATION
  Report Type: 
  Country: None (occurrence: None)
  Receive Date: 20080523
  Receipt Date: 20080523
  Transmission Date: 20081010
  Serious: Yes (Hospitalization)
  Sender: FDA-Public Use
  Company Number: None

PATIENT
  Age: 41 Year
  Sex: Female

DRUGS (1)
  1. METOPROLOL SUCCINATE [Suspect]
     Indication: HYPERTENSION
     Dosage: 2 TABLETS DAILY PO
     Route: 048
     Dates: start: 20080517, end: 20080518

REACTIONS (3)
  - PRURITUS [None]
  - SWOLLEN TONGUE [None]
  - URTICARIA [None]
